FAERS Safety Report 18217874 (Version 1)
Quarter: 2020Q3

REPORT INFORMATION
  Report Type: Spontaneous
  Country: US (occurrence: US)
  Receive Date: 20200831
  Receipt Date: 20200831
  Transmission Date: 20201103
  Serious: Yes (Other)
  Sender: FDA-Public Use
  Company Number: None

PATIENT
  Age: 78 Year
  Sex: Male
  Weight: 82.56 kg

DRUGS (9)
  1. HYDRALAZINE [Concomitant]
     Active Substance: HYDRALAZINE HYDROCHLORIDE
  2. SPIRONOLACTONE. [Concomitant]
     Active Substance: SPIRONOLACTONE
  3. VITAMIN A [Concomitant]
     Active Substance: VITAMIN A
  4. VITAMIN D3 [Concomitant]
     Active Substance: CHOLECALCIFEROL
  5. LOSARTAN. [Concomitant]
     Active Substance: LOSARTAN
  6. METOPROLOL ER SUCCINATE [Suspect]
     Active Substance: METOPROLOL SUCCINATE
     Indication: HYPERTENSION
     Dosage: ?          QUANTITY:47 DF DOSAGE FORM;?
     Route: 048
     Dates: start: 20200809, end: 20200816
  7. SINGULAIR INHALER [Concomitant]
  8. VITAMIN K?2 [Concomitant]
  9. IRON SUPPLEMENT [Concomitant]
     Active Substance: IRON

REACTIONS (4)
  - Feeling hot [None]
  - Peripheral swelling [None]
  - Burning sensation [None]
  - Product dispensing error [None]

NARRATIVE: CASE EVENT DATE: 20200816
